FAERS Safety Report 19806783 (Version 4)
Quarter: 2022Q1

REPORT INFORMATION
  Report Type: Report from Study
  Country: US (occurrence: US)
  Receive Date: 20210909
  Receipt Date: 20220202
  Transmission Date: 20220424
  Serious: No
  Sender: FDA-Public Use
  Company Number: US-NOVARTISTESTPH-NVSC2021US204165

PATIENT
  Sex: Female

DRUGS (1)
  1. ENTRESTO [Suspect]
     Active Substance: SACUBITRIL\VALSARTAN
     Indication: Product used for unknown indication
     Dosage: 1 DF, BID
     Route: 048
     Dates: start: 2016

REACTIONS (6)
  - Peripheral swelling [Unknown]
  - Anxiety [Unknown]
  - Glucose tolerance impaired [Unknown]
  - Ejection fraction abnormal [Unknown]
  - Laryngitis [Unknown]
  - Decreased activity [Unknown]
